FAERS Safety Report 7919837-7 (Version None)
Quarter: 2011Q4

REPORT INFORMATION
  Report Type: 
  Country: None (occurrence: None)
  Receive Date: 20111117
  Receipt Date: 20111117
  Transmission Date: 20120403
  Serious: Yes (Hospitalization)
  Sender: FDA-Public Use
  Company Number: None

PATIENT
  Age: 32 Year
  Sex: Female
  Weight: 85.728 kg

DRUGS (1)
  1. SAPHRIS [Suspect]
     Indication: BIPOLAR DISORDER
     Dosage: 1
     Route: 060
     Dates: start: 20111009, end: 20111014

REACTIONS (10)
  - SYNCOPE [None]
  - HANGOVER [None]
  - THIRST [None]
  - DIZZINESS [None]
  - FEELING COLD [None]
  - CONFUSIONAL STATE [None]
  - DISORIENTATION [None]
  - CONSTIPATION [None]
  - TREMOR [None]
  - MYDRIASIS [None]
